FAERS Safety Report 4766226-2 (Version None)
Quarter: 2005Q3

REPORT INFORMATION
  Report Type: 
  Country: None (occurrence: None)
  Receive Date: 20050912
  Receipt Date: 20050728
  Transmission Date: 20060218
  Serious: Yes (Life-Threatening, Hospitalization)
  Sender: FDA-Public Use
  Company Number: US-MERCK-0507USA04291

PATIENT
  Age: 48 Year
  Sex: Male

DRUGS (1)
  1. VIOXX [Suspect]
     Indication: BURSITIS
     Route: 048
     Dates: start: 20010101, end: 20030101

REACTIONS (2)
  - LOSS OF CONSCIOUSNESS [None]
  - MYOCARDIAL INFARCTION [None]
